FAERS Safety Report 17081069 (Version 2)
Quarter: 2019Q4

REPORT INFORMATION
  Report Type: Spontaneous
  Country: JP (occurrence: JP)
  Receive Date: 20191127
  Receipt Date: 20191129
  Transmission Date: 20200122
  Serious: No
  Sender: FDA-Public Use
  Company Number: JP-009507513-1911JPN011411

PATIENT
  Age: 82 Year
  Sex: Female

DRUGS (7)
  1. GLIMEPIRIDE. [Concomitant]
     Active Substance: GLIMEPIRIDE
     Dosage: UNK
  2. MICARDIS [Concomitant]
     Active Substance: TELMISARTAN
     Dosage: UNK
  3. METGLUCO [Concomitant]
     Active Substance: METFORMIN HYDROCHLORIDE
     Dosage: UNK
  4. PARIET [Concomitant]
     Active Substance: RABEPRAZOLE SODIUM
     Dosage: UNK
  5. GLACTIV [Suspect]
     Active Substance: SITAGLIPTIN
     Indication: PRODUCT USED FOR UNKNOWN INDICATION
     Dosage: 50 MG, EVERYDAY
     Route: 048
     Dates: start: 20140111, end: 20150223
  6. CALBLOCK [Concomitant]
     Active Substance: AZELNIDIPINE
     Dosage: UNK
  7. GLACTIV [Suspect]
     Active Substance: SITAGLIPTIN
     Dosage: 100 MG, EVERYDAY
     Route: 048
     Dates: start: 20150224

REACTIONS (1)
  - Tumour marker abnormal [Unknown]

NARRATIVE: CASE EVENT DATE: 201907
